FAERS Safety Report 7351884-9 (Version None)
Quarter: 2011Q1

REPORT INFORMATION
  Report Type: 
  Country: None (occurrence: None)
  Receive Date: 20110225
  Receipt Date: 20101130
  Transmission Date: 20110831
  Serious: No
  Sender: FDA-Public Use
  Company Number: 319302

PATIENT
  Age: 39 Year
  Sex: Female

DRUGS (1)
  1. VICTOZA [Suspect]
     Indication: TYPE 2 DIABETES MELLITUS
     Dosage: 1.2 MG, QD,  SUBCUTANEOUS
     Route: 058
     Dates: start: 20100901

REACTIONS (1)
  - INJECTION SITE PAIN [None]
